FAERS Safety Report 20673837 (Version 1)
Quarter: 2022Q2

REPORT INFORMATION
  Report Type: Report from Study
  Country: IN (occurrence: IN)
  Receive Date: 20220405
  Receipt Date: 20220405
  Transmission Date: 20220720
  Serious: Yes (Hospitalization, Other)
  Sender: FDA-Public Use
  Company Number: IN-NOVARTISPH-NVSC2020IN201420

PATIENT
  Age: 27 Year
  Sex: Male

DRUGS (28)
  1. SIMULECT [Suspect]
     Active Substance: BASILIXIMAB
     Indication: Renal transplant
     Dosage: 20 MG, UNKNOWN
     Route: 065
     Dates: start: 20200703
  2. SIMULECT [Suspect]
     Active Substance: BASILIXIMAB
     Dosage: 40 MG (2 VIAL)
     Route: 065
  3. TACROLIMUS [Suspect]
     Active Substance: TACROLIMUS
     Indication: Product used for unknown indication
     Dosage: UNK
     Route: 065
  4. PANTOPRAZOLE [Concomitant]
     Active Substance: PANTOPRAZOLE
     Indication: Product used for unknown indication
     Dosage: 40 MG, QD (BEFORE BREAKFAST)
     Route: 065
  5. SEPTRA DS [Concomitant]
     Active Substance: SULFAMETHOXAZOLE\TRIMETHOPRIM
     Indication: Product used for unknown indication
     Dosage: 1 DOSAGE FORM (ON ALTERNATE DAYS AFTER BREAKFAST)
     Route: 065
  6. MINIPRESS [Concomitant]
     Active Substance: PRAZOSIN HYDROCHLORIDE
     Indication: Product used for unknown indication
     Dosage: 5 MG, BID (8 AM  AND 8 PM)
     Route: 065
  7. MINIPRESS [Concomitant]
     Active Substance: PRAZOSIN HYDROCHLORIDE
     Dosage: 2.5 MG, BID
     Route: 065
  8. AMLODIPINE BESYLATE [Concomitant]
     Active Substance: AMLODIPINE BESYLATE
     Indication: Product used for unknown indication
     Dosage: 10 MG, BID (8 AM AND 8 PM)
     Route: 065
  9. AMLODIPINE BESYLATE [Concomitant]
     Active Substance: AMLODIPINE BESYLATE
     Dosage: UNK, QD
     Route: 065
  10. METOPROLOL TARTRATE [Concomitant]
     Active Substance: METOPROLOL TARTRATE
     Indication: Product used for unknown indication
     Dosage: 50 MG, BID (8 AM AND 8 PM)
     Route: 065
  11. TACROLIMUS [Concomitant]
     Active Substance: TACROLIMUS
     Indication: Product used for unknown indication
     Dosage: 2.5 G, BID (8 AM AND 8 PM)
     Route: 065
  12. PREDNISOLONE [Concomitant]
     Active Substance: PREDNISOLONE
     Indication: Product used for unknown indication
     Dosage: 25 MG, QD (8 AM)
     Route: 065
  13. CALCIUM CARBONATE\CHOLECALCIFEROL [Concomitant]
     Active Substance: CALCIUM CARBONATE\CHOLECALCIFEROL
     Indication: Product used for unknown indication
     Dosage: 500 MG, QD (AFTER LUNCH) (10 AM)
     Route: 065
  14. NEUROBION FORTE [Concomitant]
     Active Substance: CYANOCOBALAMIN\PYRIDOXINE HYDROCHLORIDE\THIAMINE DISULFIDE
     Indication: Product used for unknown indication
     Dosage: UNK, QD (AFTER DINNER) (10 AM)
     Route: 065
  15. LIVOGEN XT [Concomitant]
     Indication: Product used for unknown indication
     Dosage: UNK, QD (AFTER DINNER) (10 PM)
     Route: 065
  16. ARKAMIN [Concomitant]
     Indication: Product used for unknown indication
     Dosage: 2 DOSAGE FORM, TID (AFTER MEALS) (8-4-10)
     Route: 065
  17. CANDID [Concomitant]
     Indication: Product used for unknown indication
     Dosage: UNK UNK, TID
     Route: 065
  18. INSULIN HUMAN [Concomitant]
     Active Substance: INSULIN HUMAN
     Indication: Diabetes mellitus
     Dosage: UNK UNK, BID (30 UNITS BEFORE BREAKFAST)
     Route: 065
  19. INSULIN HUMAN [Concomitant]
     Active Substance: INSULIN HUMAN
     Dosage: UNK (24 UNITS BEFORE DINNER)
     Route: 065
  20. LANTUS [Concomitant]
     Active Substance: INSULIN GLARGINE
     Indication: Diabetes mellitus
     Dosage: UNK, QD (16 UNITS SUBCUTANEOUS ONCE A DAY 10 PM)
     Route: 058
  21. RITUXIMAB [Concomitant]
     Active Substance: RITUXIMAB
     Indication: Product used for unknown indication
     Dosage: UNK
     Route: 065
     Dates: start: 20200528
  22. PIPERACILLIN SODIUM\TAZOBACTAM SODIUM [Concomitant]
     Active Substance: PIPERACILLIN SODIUM\TAZOBACTAM SODIUM
     Indication: Product used for unknown indication
     Dosage: 4.5 G, BID (7 DAYS 10 - 9 PM)
     Route: 042
  23. MYCOPHENOLATE MOFETIL [Concomitant]
     Active Substance: MYCOPHENOLATE MOFETIL
     Indication: Product used for unknown indication
     Dosage: 120 MG, BID (10 -10)
     Route: 065
  24. TORSEMIDE [Concomitant]
     Active Substance: TORSEMIDE
     Indication: Product used for unknown indication
     Dosage: 10 MG, BID (10-10)
     Route: 065
  25. CLONAZEPAM [Concomitant]
     Active Substance: CLONAZEPAM
     Indication: Product used for unknown indication
     Dosage: 0.25 MG, BID
     Route: 065
  26. CREMAFFIN [Concomitant]
     Indication: Constipation
     Dosage: 3 TABLE SPOON (BED TIME)
     Route: 065
  27. DOLO [Concomitant]
     Indication: Product used for unknown indication
     Dosage: 650 MG, BID (3 DAYS)
     Route: 065
  28. ULTRACET [Concomitant]
     Active Substance: ACETAMINOPHEN\TRAMADOL HYDROCHLORIDE
     Indication: Pain
     Dosage: UNK (1/2 TABLET)
     Route: 065

REACTIONS (1)
  - Kidney transplant rejection [Not Recovered/Not Resolved]

NARRATIVE: CASE EVENT DATE: 20200703
